FAERS Safety Report 25833106 (Version 1)
Quarter: 2025Q3

REPORT INFORMATION
  Report Type: Spontaneous
  Country: EU (occurrence: EU)
  Receive Date: 20250922
  Receipt Date: 20250922
  Transmission Date: 20251021
  Serious: Yes (Other)
  Sender: AMGEN
  Company Number: EU-AMGEN-NORSP2025186787

PATIENT
  Sex: Male

DRUGS (1)
  1. PROCYSBI [Suspect]
     Active Substance: CYSTEAMINE BITARTRATE
     Indication: Cystinosis
     Route: 048

REACTIONS (4)
  - Neuropathy peripheral [Unknown]
  - Aphonia [Unknown]
  - Dysphagia [Unknown]
  - Muscular weakness [Unknown]
